FAERS Safety Report 18896244 (Version 4)
Quarter: 2021Q2

REPORT INFORMATION
  Report Type: Report from Study
  Country: JP (occurrence: JP)
  Receive Date: 20210216
  Receipt Date: 20210614
  Transmission Date: 20210717
  Serious: Yes (Hospitalization)
  Sender: FDA-Public Use
  Company Number: JP-CELLTRION INC.-2021JP001688

PATIENT

DRUGS (25)
  1. CT?P6 [Suspect]
     Active Substance: INVESTIGATIONAL BIOSIMILARS
     Dosage: 270 MG, QD
     Route: 041
     Dates: start: 20200311, end: 20200311
  2. CAPECITABINE. [Suspect]
     Active Substance: CAPECITABINE
     Dosage: 2400 MILLIGRAM, QD
     Route: 048
     Dates: start: 20200108, end: 20200122
  3. NEXIUM [Concomitant]
     Active Substance: ESOMEPRAZOLE MAGNESIUM
     Indication: HER2 POSITIVE GASTRIC CANCER
     Dosage: UNK
     Dates: start: 20191129, end: 20200508
  4. CT?P6 [Suspect]
     Active Substance: INVESTIGATIONAL BIOSIMILARS
     Dosage: 270 MG, QD
     Route: 041
     Dates: start: 20200129, end: 20200129
  5. CISPLATIN. [Suspect]
     Active Substance: CISPLATIN
     Indication: HER2 POSITIVE GASTRIC CANCER
     Dosage: 100 MILLIGRAM, QD
     Route: 041
     Dates: start: 20191218, end: 20191218
  6. CISPLATIN. [Suspect]
     Active Substance: CISPLATIN
     Dosage: 80 MILLIGRAM, QD
     Route: 041
     Dates: start: 20200311, end: 20200311
  7. CISPLATIN. [Suspect]
     Active Substance: CISPLATIN
     Dosage: 80 MILLIGRAM, QD
     Route: 041
     Dates: start: 20200401, end: 20200401
  8. HYALURONATE NA [Concomitant]
     Active Substance: HYALURONATE SODIUM
     Indication: CATARACT
     Dosage: UNK
  9. CT?P6 [Suspect]
     Active Substance: INVESTIGATIONAL BIOSIMILARS
     Indication: HER2 POSITIVE GASTRIC CANCER
     Dosage: 340 MG, QD
     Route: 041
     Dates: start: 20191218, end: 20191218
  10. CT?P6 [Suspect]
     Active Substance: INVESTIGATIONAL BIOSIMILARS
     Dosage: 270 MG, QD
     Route: 041
     Dates: start: 20200219, end: 20200219
  11. CT?P6 [Suspect]
     Active Substance: INVESTIGATIONAL BIOSIMILARS
     Dosage: 270 MG, QD
     Route: 041
     Dates: start: 20200401, end: 20200401
  12. CAPECITABINE. [Suspect]
     Active Substance: CAPECITABINE
     Indication: HER2 POSITIVE GASTRIC CANCER
     Dosage: 2400 MILLIGRAM, QD
     Route: 048
     Dates: start: 20191218, end: 20200101
  13. MIKELAN LA [Concomitant]
     Active Substance: CARTEOLOL HYDROCHLORIDE
     Indication: GLAUCOMA
     Dosage: UNK
  14. CAPECITABINE. [Suspect]
     Active Substance: CAPECITABINE
     Dosage: 2400 MILLIGRAM, QD
     Route: 048
     Dates: start: 20200129, end: 20200212
  15. CAPECITABINE. [Suspect]
     Active Substance: CAPECITABINE
     Dosage: 2400 MILLIGRAM, QD
     Route: 048
     Dates: start: 20200422, end: 20200505
  16. OLANZAPINE. [Concomitant]
     Active Substance: OLANZAPINE
     Indication: NAUSEA
     Dosage: UNK
     Dates: start: 20200129, end: 20200203
  17. CT?P6 [Suspect]
     Active Substance: INVESTIGATIONAL BIOSIMILARS
     Dosage: 270 MG, QD
     Route: 041
     Dates: start: 20200108, end: 20200108
  18. CT?P6 [Suspect]
     Active Substance: INVESTIGATIONAL BIOSIMILARS
     Dosage: 270 MG, QD
     Route: 041
     Dates: start: 20200422, end: 20200422
  19. CISPLATIN. [Suspect]
     Active Substance: CISPLATIN
     Dosage: 80 MILLIGRAM, QD
     Route: 041
     Dates: start: 20200129, end: 20200129
  20. CISPLATIN. [Suspect]
     Active Substance: CISPLATIN
     Dosage: 80 MILLIGRAM, QD
     Route: 041
     Dates: start: 20200422, end: 20200422
  21. CISPLATIN. [Suspect]
     Active Substance: CISPLATIN
     Dosage: 80 MILLIGRAM, QD
     Route: 041
     Dates: start: 20200219, end: 20200219
  22. CAPECITABINE. [Suspect]
     Active Substance: CAPECITABINE
     Dosage: 2400 MILLIGRAM, QD
     Route: 048
     Dates: start: 20200219, end: 20200304
  23. CAPECITABINE. [Suspect]
     Active Substance: CAPECITABINE
     Dosage: 2400 MILLIGRAM, QD
     Route: 048
     Dates: start: 20200311, end: 20200325
  24. CISPLATIN. [Suspect]
     Active Substance: CISPLATIN
     Dosage: 80 MILLIGRAM, QD
     Route: 041
     Dates: start: 20200108, end: 20200108
  25. CAPECITABINE. [Suspect]
     Active Substance: CAPECITABINE
     Dosage: 2400 MILLIGRAM, QD
     Route: 048
     Dates: start: 20200401, end: 20200415

REACTIONS (9)
  - Palmar-plantar erythrodysaesthesia syndrome [Not Recovered/Not Resolved]
  - Bacteraemia [Recovered/Resolved]
  - Anaemia [Not Recovered/Not Resolved]
  - Skin hyperpigmentation [Not Recovered/Not Resolved]
  - Underdose [Unknown]
  - Nausea [Recovered/Resolved]
  - Disseminated intravascular coagulation [Recovered/Resolved]
  - Taste disorder [Not Recovered/Not Resolved]
  - Overdose [Unknown]

NARRATIVE: CASE EVENT DATE: 20191223
